FAERS Safety Report 19906090 (Version 4)
Quarter: 2022Q1

REPORT INFORMATION
  Report Type: Report from Study
  Country: IT (occurrence: IT)
  Receive Date: 20211001
  Receipt Date: 20220218
  Transmission Date: 20220423
  Serious: Yes (Hospitalization, Other)
  Sender: FDA-Public Use
  Company Number: IT-AMGEN-ITANI2021148424

PATIENT
  Age: 65 Year
  Sex: Male

DRUGS (3)
  1. AMG-510 [Suspect]
     Active Substance: AMG-510
     Indication: Non-small cell lung cancer
     Dosage: 960 MILLIGRAM, QD
     Route: 065
     Dates: start: 20210805, end: 20210831
  2. AMG-510 [Suspect]
     Active Substance: AMG-510
     Dosage: 480 MILLIGRAM, QD
     Route: 065
     Dates: start: 20210917, end: 20210921
  3. AMG-510 [Suspect]
     Active Substance: AMG-510
     Dosage: 240 MILLIGRAM, QD
     Route: 065
     Dates: start: 20211004, end: 20211011

REACTIONS (4)
  - Hepatotoxicity [Recovered/Resolved]
  - Renal impairment [Recovered/Resolved]
  - Pyrexia [Recovered/Resolved]
  - Vomiting [Recovered/Resolved]

NARRATIVE: CASE EVENT DATE: 20210901
